APPROVED DRUG PRODUCT: CEFTRIAXONE
Active Ingredient: CEFTRIAXONE SODIUM
Strength: EQ 100GM BASE/VIAL
Dosage Form/Route: INJECTABLE;INJECTION
Application: A090057 | Product #001
Applicant: SAMSON MEDICAL TECHNOLOGIES LLC
Approved: Apr 25, 2014 | RLD: No | RS: No | Type: RX